FAERS Safety Report 4599663-X (Version None)
Quarter: 2005Q1

REPORT INFORMATION
  Report Type: 
  Country: None (occurrence: None)
  Receive Date: 20050307
  Receipt Date: 20050222
  Transmission Date: 20050727
  Serious: Yes (Hospitalization)
  Sender: FDA-Public Use
  Company Number: PHHO2005IT03053

PATIENT
  Age: 47 Year
  Sex: Male

DRUGS (6)
  1. MYCOPHENOLIC ACID [Suspect]
     Indication: RENAL TRANSPLANT
     Dosage: 720 MG, BID
     Route: 048
     Dates: start: 20031026, end: 20040115
  2. MYCOPHENOLIC ACID [Suspect]
     Dosage: 360 MG, BID
     Route: 048
     Dates: start: 20040116, end: 20040123
  3. NEORAL [Suspect]
     Indication: RENAL TRANSPLANT
     Dosage: 50 MG, QD
     Route: 048
     Dates: start: 20040123
  4. NEORAL [Suspect]
     Dosage: 200 MG, BID
     Route: 048
     Dates: start: 20031211, end: 20031217
  5. NEORAL [Suspect]
     Dosage: 150 MG, BID
     Route: 048
     Dates: start: 20031218, end: 20040115
  6. NEORAL [Suspect]
     Dosage: 100 MG, BID
     Route: 048
     Dates: start: 20040116, end: 20040122

REACTIONS (4)
  - BLOOD CREATININE INCREASED [None]
  - NEPHRITIS INTERSTITIAL [None]
  - RENAL ARTERIOSCLEROSIS [None]
  - RENAL IMPAIRMENT [None]
